FAERS Safety Report 7629201-6 (Version None)
Quarter: 2011Q3

REPORT INFORMATION
  Report Type: 
  Country: None (occurrence: None)
  Receive Date: 20110715
  Receipt Date: 20110707
  Transmission Date: 20111222
  Serious: Yes (Death)
  Sender: FDA-Public Use
  Company Number: US-2011-10464

PATIENT
  Age: 59 Year
  Sex: Female

DRUGS (5)
  1. PREDNISOLONE [Concomitant]
  2. BUSULFEX [Suspect]
     Indication: CORD BLOOD TRANSPLANT THERAPY
     Dosage: 4 MG/KG, DAILY DOSE, INTRAVENOUS
     Route: 042
  3. ANTI-THYMOCYTE GLOBULIN NOS [Concomitant]
  4. FLUDARABINE PHOSPHATE [Suspect]
     Indication: CORD BLOOD TRANSPLANT THERAPY
  5. CYCLOSPORINE [Concomitant]

REACTIONS (3)
  - LYMPHOPROLIFERATIVE DISORDER [None]
  - CYTOMEGALOVIRUS INFECTION [None]
  - EPSTEIN-BARR VIRUS INFECTION [None]
